FAERS Safety Report 4691352-6 (Version None)
Quarter: 2005Q2

REPORT INFORMATION
  Report Type: 
  Country: None (occurrence: None)
  Receive Date: 20050615
  Receipt Date: 20050314
  Transmission Date: 20051028
  Serious: Yes (Hospitalization, Disabling)
  Sender: FDA-Public Use
  Company Number: US-MERCK-0503USA02956

PATIENT
  Age: 61 Year
  Sex: Male
  Weight: 90 kg

DRUGS (7)
  1. VIOXX [Suspect]
     Indication: PAIN
     Route: 048
     Dates: start: 20010712, end: 20021029
  2. ASPIRIN [Concomitant]
     Route: 065
  3. OXYCODONE [Concomitant]
     Route: 065
  4. HYDROCODONE HYDROCHLORIDE [Concomitant]
     Route: 065
  5. CLARITIN [Concomitant]
     Route: 065
  6. LAMISIL [Concomitant]
     Route: 065
  7. INDOMETHACIN [Concomitant]
     Route: 065

REACTIONS (5)
  - ANHEDONIA [None]
  - EMOTIONAL DISTRESS [None]
  - MYOCARDIAL INFARCTION [None]
  - NECK INJURY [None]
  - PAIN [None]
